FAERS Safety Report 7133377-7 (Version None)
Quarter: 2010Q4

REPORT INFORMATION
  Report Type: 
  Country: None (occurrence: None)
  Receive Date: 20101202
  Receipt Date: 20101119
  Transmission Date: 20110411
  Serious: Yes (Death, Hospitalization, Other)
  Sender: FDA-Public Use
  Company Number: FR-CEPHALON-2010002285

PATIENT
  Sex: Female
  Weight: 48 kg

DRUGS (3)
  1. TREANDA [Suspect]
     Indication: MULTIPLE MYELOMA
     Route: 041
     Dates: start: 20081128, end: 20081223
  2. TREANDA [Suspect]
     Route: 041
     Dates: start: 20090119, end: 20090309
  3. TREANDA [Suspect]
     Route: 041
     Dates: start: 20090309

REACTIONS (8)
  - APLASIA [None]
  - FEBRILE NEUTROPENIA [None]
  - LUNG DISORDER [None]
  - MULTIPLE MYELOMA [None]
  - PAIN [None]
  - RESPIRATORY DISTRESS [None]
  - SEPSIS [None]
  - THROMBOCYTOPENIA [None]
